FAERS Safety Report 4750785-X (Version None)
Quarter: 2005Q3

REPORT INFORMATION
  Report Type: 
  Country: None (occurrence: None)
  Receive Date: 20050823
  Receipt Date: 20050713
  Transmission Date: 20060218
  Serious: Yes (Hospitalization)
  Sender: FDA-Public Use
  Company Number: US-MERCK-0507USA01917

PATIENT
  Age: 77 Year
  Sex: Male
  Weight: 80 kg

DRUGS (6)
  1. VIOXX [Suspect]
     Indication: ARTHRITIS
     Route: 048
     Dates: start: 20010507, end: 20021022
  2. NAPROXEN [Concomitant]
     Route: 065
  3. PLAVIX [Concomitant]
     Route: 065
  4. GLYBURIDE [Concomitant]
     Route: 065
  5. CORZIDE TABLETS [Concomitant]
     Route: 065
  6. CLARITIN [Concomitant]
     Route: 065

REACTIONS (1)
  - CEREBROVASCULAR ACCIDENT [None]
